FAERS Safety Report 8622005-7 (Version None)
Quarter: 2012Q3

REPORT INFORMATION
  Report Type: 
  Country: None (occurrence: None)
  Receive Date: 20120823
  Receipt Date: 20120823
  Transmission Date: 20120928
  Serious: Yes (Other)
  Sender: FDA-Public Use
  Company Number: None

PATIENT
  Age: 68 Year
  Sex: Male
  Weight: 63.5036 kg

DRUGS (2)
  1. CREST PRO-HEALTH CLINICAL RINSE 0.1% CPC [Suspect]
     Indication: PROPHYLAXIS
     Dosage: 1 TBSP. WIFE-ONCE HUSB-TWI
     Route: 048
     Dates: start: 20120818, end: 20120820
  2. CREST PRO-HEALTH CLINICAL RINSE 0.1% CPC [Suspect]
     Indication: TOOTH DEPOSIT
     Dosage: 1 TBSP. WIFE-ONCE HUSB-TWI
     Route: 048
     Dates: start: 20120818, end: 20120820

REACTIONS (4)
  - TONGUE DISCOLOURATION [None]
  - OROPHARYNGEAL PAIN [None]
  - GINGIVAL PAIN [None]
  - TONGUE DISORDER [None]
